FAERS Safety Report 10674264 (Version 2)
Quarter: 2014Q4

REPORT INFORMATION
  Report Type: Spontaneous
  Country: US (occurrence: US)
  Receive Date: 20141224
  Receipt Date: 20141229
  Transmission Date: 20150529
  Serious: Yes (Hospitalization, Other)
  Sender: FDA-Public Use
  Company Number: US-AMGEN-USASP2014099303

PATIENT
  Age: 68 Year
  Sex: Female

DRUGS (1)
  1. PROLIA [Suspect]
     Active Substance: DENOSUMAB
     Indication: OSTEOPOROSIS
     Dosage: 60 MG, Q6MO (30 MG ONE MONTH AND 30 MG OTHER MONTH)
     Route: 065
     Dates: start: 2010

REACTIONS (11)
  - Cough [Unknown]
  - Asthenia [Unknown]
  - Swelling [Unknown]
  - Infection [Unknown]
  - Confusional state [Unknown]
  - Hypocalcaemia [Recovered/Resolved]
  - Pyrexia [Unknown]
  - Tenderness [Unknown]
  - Dyskinesia [Unknown]
  - Pain [Unknown]
  - Chills [Unknown]

NARRATIVE: CASE EVENT DATE: 2010
